FAERS Safety Report 8524449-0 (Version None)
Quarter: 2012Q3

REPORT INFORMATION
  Report Type: 
  Country: None (occurrence: None)
  Receive Date: 20120720
  Receipt Date: 20120716
  Transmission Date: 20120928
  Serious: No
  Sender: FDA-Public Use
  Company Number: US-PFIZER INC-2012135273

PATIENT
  Sex: Female
  Weight: 71.66 kg

DRUGS (2)
  1. ADVIL [Suspect]
     Indication: INFLAMMATION
  2. ADVIL [Suspect]
     Indication: PAIN
     Dosage: UNK, AS NEEDED
     Route: 048

REACTIONS (6)
  - PARAESTHESIA ORAL [None]
  - HYPOAESTHESIA ORAL [None]
  - POOR QUALITY DRUG ADMINISTERED [None]
  - PRODUCT QUALITY ISSUE [None]
  - BURNING SENSATION [None]
  - PRODUCT TASTE ABNORMAL [None]
